FAERS Safety Report 4411684-6 (Version None)
Quarter: 2004Q3

REPORT INFORMATION
  Report Type: 
  Country: None (occurrence: None)
  Receive Date: 20040730
  Receipt Date: 20040727
  Transmission Date: 20050211
  Serious: Yes (Other)
  Sender: FDA-Public Use
  Company Number: PHBS2004JP10015

PATIENT
  Age: 70 Year
  Sex: Female

DRUGS (2)
  1. RITALIN [Suspect]
     Indication: SOMNOLENCE
     Dosage: 20 MG/D
     Route: 048
  2. MORPHINE HYDROCHLORIDE [Concomitant]

REACTIONS (4)
  - DELIRIUM [None]
  - DIZZINESS [None]
  - TREMOR [None]
  - VOMITING [None]
